FAERS Safety Report 4582381-1 (Version None)
Quarter: 2005Q1

REPORT INFORMATION
  Report Type: 
  Country: None (occurrence: None)
  Receive Date: 20050119
  Receipt Date: 20040317
  Transmission Date: 20050727
  Serious: Yes (Other)
  Sender: FDA-Public Use
  Company Number: US-JNJFOC-20040100552

PATIENT
  Age: 36 Year
  Sex: Male
  Weight: 58.9676 kg

DRUGS (8)
  1. DOXIL [Suspect]
     Indication: FIBROSARCOMA METASTATIC
     Dosage: 34 MG, INTRAVENOUS
     Route: 042
     Dates: start: 20030827, end: 20030827
  2. DOXIL [Suspect]
     Indication: FIBROSARCOMA METASTATIC
     Dosage: 34 MG, INTRAVENOUS
     Route: 042
     Dates: start: 20030910, end: 20030910
  3. DOXIL [Suspect]
     Indication: FIBROSARCOMA METASTATIC
     Dosage: 34 MG, INTRAVENOUS
     Route: 042
     Dates: start: 20030924, end: 20030924
  4. DOXIL [Suspect]
     Indication: FIBROSARCOMA METASTATIC
     Dosage: 34 MG, INTRAVENOUS
     Route: 042
     Dates: start: 20031008, end: 20031008
  5. DOXIL [Suspect]
     Indication: FIBROSARCOMA METASTATIC
     Dosage: 34 MG, INTRAVENOUS
     Route: 042
     Dates: start: 20031205, end: 20031205
  6. TEMODAR [Concomitant]
  7. THALIDOMIDE (THALIDOMIDE) [Concomitant]
  8. PAIN MEDICATION (ANALGESICS) [Concomitant]

REACTIONS (1)
  - MALIGNANT NEOPLASM PROGRESSION [None]
